FAERS Safety Report 22841744 (Version 25)
Quarter: 2024Q1

REPORT INFORMATION
  Report Type: Other
  Country: JP (occurrence: JP)
  Receive Date: 20230821
  Receipt Date: 20240130
  Transmission Date: 20240409
  Serious: Yes (Hospitalization, Other)
  Sender: FDA-Public Use
  Company Number: JP-CHUGAI-2023029844AA

PATIENT
  Age: 84 Year
  Sex: Female
  Weight: 49.9 kg

DRUGS (25)
  1. POLIVY [Suspect]
     Active Substance: POLATUZUMAB VEDOTIN-PIIQ
     Indication: Diffuse large B-cell lymphoma
     Route: 041
     Dates: start: 20230607, end: 20230607
  2. POLIVY [Suspect]
     Active Substance: POLATUZUMAB VEDOTIN-PIIQ
     Route: 041
     Dates: start: 20230628, end: 20230719
  3. POLIVY [Suspect]
     Active Substance: POLATUZUMAB VEDOTIN-PIIQ
     Route: 041
     Dates: start: 20230825, end: 20230825
  4. POLIVY [Suspect]
     Active Substance: POLATUZUMAB VEDOTIN-PIIQ
     Route: 041
     Dates: start: 20230927, end: 20230927
  5. POLIVY [Suspect]
     Active Substance: POLATUZUMAB VEDOTIN-PIIQ
     Route: 041
     Dates: start: 20230719, end: 20230719
  6. RITUXAN [Suspect]
     Active Substance: RITUXIMAB
     Indication: Diffuse large B-cell lymphoma
     Route: 041
     Dates: start: 20230825, end: 20230825
  7. RITUXIMAB [Suspect]
     Active Substance: RITUXIMAB
     Indication: Diffuse large B-cell lymphoma
     Route: 042
     Dates: start: 20230606, end: 20230606
  8. RITUXIMAB [Suspect]
     Active Substance: RITUXIMAB
     Dosage: 540 MILLIGRAM
     Route: 042
     Dates: start: 20230628, end: 20230719
  9. RITUXIMAB [Suspect]
     Active Substance: RITUXIMAB
     Route: 042
     Dates: start: 20230825, end: 20230927
  10. RITUXIMAB [Suspect]
     Active Substance: RITUXIMAB
     Route: 042
     Dates: start: 20230719, end: 20230719
  11. CYCLOPHOSPHAMIDE [Suspect]
     Active Substance: CYCLOPHOSPHAMIDE
     Indication: Diffuse large B-cell lymphoma
     Dosage: 920 MILLIGRAM, SINGLE
     Route: 041
     Dates: start: 20230607, end: 20230607
  12. CYCLOPHOSPHAMIDE [Suspect]
     Active Substance: CYCLOPHOSPHAMIDE
     Dosage: 840 MILLIGRAM
     Route: 041
     Dates: start: 20230628, end: 20230719
  13. CYCLOPHOSPHAMIDE [Suspect]
     Active Substance: CYCLOPHOSPHAMIDE
     Route: 042
     Dates: start: 20230825, end: 20230825
  14. CYCLOPHOSPHAMIDE [Suspect]
     Active Substance: CYCLOPHOSPHAMIDE
     Route: 042
     Dates: start: 20230719, end: 20230719
  15. CYCLOPHOSPHAMIDE [Suspect]
     Active Substance: CYCLOPHOSPHAMIDE
     Route: 042
     Dates: start: 20230927, end: 20230927
  16. DOXORUBICIN HYDROCHLORIDE [Suspect]
     Active Substance: DOXORUBICIN HYDROCHLORIDE
     Indication: Diffuse large B-cell lymphoma
     Dosage: 60 MILLIGRAM, SINGLE
     Route: 042
     Dates: start: 20230607, end: 20230607
  17. DOXORUBICIN HYDROCHLORIDE [Suspect]
     Active Substance: DOXORUBICIN HYDROCHLORIDE
     Dosage: 56 MILLIGRAM
     Route: 042
     Dates: start: 20230628, end: 20230628
  18. DOXORUBICIN HYDROCHLORIDE [Suspect]
     Active Substance: DOXORUBICIN HYDROCHLORIDE
     Route: 042
     Dates: start: 20230719, end: 20230719
  19. DOXORUBICIN HYDROCHLORIDE [Suspect]
     Active Substance: DOXORUBICIN HYDROCHLORIDE
     Route: 042
     Dates: start: 20230825, end: 20230825
  20. DOXORUBICIN HYDROCHLORIDE [Suspect]
     Active Substance: DOXORUBICIN HYDROCHLORIDE
     Route: 042
     Dates: start: 20230927, end: 20230927
  21. PREDNISOLONE [Concomitant]
     Active Substance: PREDNISOLONE
     Indication: Diffuse large B-cell lymphoma
     Dosage: 85 MILLIGRAM, QD
     Route: 048
     Dates: start: 20230607, end: 20230611
  22. PREDNISOLONE [Concomitant]
     Active Substance: PREDNISOLONE
     Dosage: 90 MILLIGRAM, QD
     Route: 048
     Dates: start: 20230628, end: 20230702
  23. PREDNISOLONE [Concomitant]
     Active Substance: PREDNISOLONE
     Dosage: 90 MILLIGRAM, QD
     Route: 048
     Dates: start: 20230719, end: 20230723
  24. PREDNISOLONE [Concomitant]
     Active Substance: PREDNISOLONE
     Dosage: 90 MILLIGRAM, QD
     Dates: start: 20230825, end: 20230829
  25. PREDNISOLONE [Concomitant]
     Active Substance: PREDNISOLONE
     Dosage: 50 MILLIGRAM, QD
     Dates: start: 20230927, end: 20231001

REACTIONS (24)
  - Stomatitis [Recovering/Resolving]
  - Decreased appetite [Recovering/Resolving]
  - Neutrophil count decreased [Not Recovered/Not Resolved]
  - Platelet count decreased [Recovering/Resolving]
  - Aspartate aminotransferase increased [Recovering/Resolving]
  - Febrile neutropenia [Recovering/Resolving]
  - Anaemia [Recovering/Resolving]
  - Alanine aminotransferase increased [Recovering/Resolving]
  - Alanine aminotransferase increased [Recovering/Resolving]
  - Aspartate aminotransferase increased [Recovering/Resolving]
  - Alanine aminotransferase increased [Recovering/Resolving]
  - White blood cell count decreased [Not Recovered/Not Resolved]
  - Myelosuppression [Recovered/Resolved]
  - Vascular device infection [Unknown]
  - Decreased appetite [Not Recovered/Not Resolved]
  - Pyrexia [Recovering/Resolving]
  - Staphylococcal sepsis [Recovering/Resolving]
  - Bacterial sepsis [Recovering/Resolving]
  - Pseudomembranous colitis [Recovering/Resolving]
  - Aspartate aminotransferase increased [Recovering/Resolving]
  - COVID-19 [Recovering/Resolving]
  - Cytomegalovirus infection [Not Recovered/Not Resolved]
  - Pneumonia [Recovering/Resolving]
  - Corynebacterium sepsis [Recovering/Resolving]

NARRATIVE: CASE EVENT DATE: 20230615
